FAERS Safety Report 4278569-X (Version None)
Quarter: 2004Q1

REPORT INFORMATION
  Report Type: 
  Country: None (occurrence: None)
  Receive Date: 20040122
  Receipt Date: 20031006
  Transmission Date: 20041129
  Serious: Yes (Hospitalization)
  Sender: FDA-Public Use
  Company Number: F04200300171

PATIENT
  Age: 62 Year
  Sex: Male

DRUGS (13)
  1. ARIXTRA [Suspect]
     Indication: KNEE ARTHROPLASTY
     Dosage: 2.5 MG OD, SUBCUTANEOUS
     Route: 058
     Dates: start: 20030110, end: 20030118
  2. ARIXTRA [Suspect]
     Indication: THROMBOSIS PROPHYLAXIS
     Dosage: 2.5 MG OD, SUBCUTANEOUS
     Route: 058
     Dates: start: 20030110, end: 20030118
  3. GENTAMICIN SULFATE [Concomitant]
  4. FUROSEMIDE [Concomitant]
  5. ACERBON (LISINOPRIL) [Concomitant]
  6. DYTIDE H (HCTZ/TRIMATERENE) [Concomitant]
  7. SORTIS (ATORVASTATIN CALCIUM) [Concomitant]
  8. ALLOPURINOL [Concomitant]
  9. REQUIP [Concomitant]
  10. DOXEPIN HCL [Concomitant]
  11. TOREM (TORASEMIDE) [Concomitant]
  12. DETRUSITOL (TOLTERODINE L-TARTRATE) [Concomitant]
  13. MUNOBAL (FELODIPINE) [Concomitant]

REACTIONS (6)
  - C-REACTIVE PROTEIN INCREASED [None]
  - HAEMATOMA [None]
  - HAEMOGLOBIN DECREASED [None]
  - PLATELET COUNT DECREASED [None]
  - POST PROCEDURAL COMPLICATION [None]
  - RENAL FAILURE ACUTE [None]
